FAERS Safety Report 4489786-8 (Version None)
Quarter: 2004Q4

REPORT INFORMATION
  Report Type: 
  Country: None (occurrence: None)
  Receive Date: 20041026
  Receipt Date: 20041007
  Transmission Date: 20050328
  Serious: Yes (Hospitalization, Other)
  Sender: FDA-Public Use
  Company Number: JP_041004695

PATIENT
  Age: 67 Year
  Sex: Male

DRUGS (4)
  1. ONCOVIN [Suspect]
     Indication: DIFFUSE LARGE B-CELL LYMPHOMA STAGE III
     Dosage: 2 MG
  2. CYCLOPHOSPHAMIDE [Concomitant]
  3. DOXORUBICIN HCL [Concomitant]
  4. PREDNSOLONE [Concomitant]

REACTIONS (5)
  - DIALYSIS [None]
  - DIFFUSE LARGE B-CELL LYMPHOMA STAGE III [None]
  - GENERAL PHYSICAL HEALTH DETERIORATION [None]
  - MALIGNANT NEOPLASM PROGRESSION [None]
  - RENAL FAILURE ACUTE [None]
